FAERS Safety Report 4796435-8 (Version None)
Quarter: 2005Q4

REPORT INFORMATION
  Report Type: 
  Country: None (occurrence: None)
  Receive Date: 20051013
  Receipt Date: 20050902
  Transmission Date: 20060501
  Serious: Yes (Other)
  Sender: FDA-Public Use
  Company Number: PHBS2005JP13018

PATIENT
  Age: 60 Year
  Sex: Female
  Weight: 59 kg

DRUGS (3)
  1. AREDIA [Suspect]
     Indication: METASTASES TO BONE
     Dosage: 90 MG, QMO
     Route: 042
     Dates: start: 20050725, end: 20050912
  2. LOXONIN [Concomitant]
     Route: 048
  3. CYCLOPHOSPHAMIDE + DOXORUBICIN + 5-FU [Suspect]
     Route: 065

REACTIONS (13)
  - BONE DISORDER [None]
  - C-REACTIVE PROTEIN DECREASED [None]
  - GINGIVAL DISCOLOURATION [None]
  - GINGIVAL OPERATION [None]
  - GINGIVITIS [None]
  - NEUTROPHIL COUNT DECREASED [None]
  - OSTEONECROSIS [None]
  - PERIODONTAL DISEASE [None]
  - PYREXIA [None]
  - STOMATITIS [None]
  - TOOTH DISORDER [None]
  - TOOTH EXTRACTION [None]
  - TUMOUR ULCERATION [None]
